FAERS Safety Report 26087385 (Version 1)
Quarter: 2025Q4

REPORT INFORMATION
  Report Type: Spontaneous
  Country: EU (occurrence: EU)
  Receive Date: 20251125
  Receipt Date: 20251125
  Transmission Date: 20260117
  Serious: Yes (Life-Threatening, Other)
  Sender: MERCK SHARP & DOHME LLC
  Company Number: None

PATIENT
  Age: 57 Year
  Sex: Female
  Weight: 63 kg

DRUGS (6)
  1. ROCURONIUM BROMIDE [Suspect]
     Active Substance: ROCURONIUM BROMIDE
     Indication: Anaesthesia
     Dosage: 30MG
     Route: 042
     Dates: start: 20251029, end: 20251029
  2. LIDOCAINE [Concomitant]
     Active Substance: LIDOCAINE
     Indication: Anaesthesia
     Dosage: 20MG
     Route: 042
     Dates: start: 20251029, end: 20251029
  3. PROPOFOL [Concomitant]
     Active Substance: PROPOFOL
     Indication: Anaesthesia
     Dosage: 120MG
     Route: 042
     Dates: start: 20251029, end: 20251029
  4. SULFAN BLUE [Suspect]
     Active Substance: SULFAN BLUE
     Indication: Surgery
     Dosage: 12.5MG
     Route: 042
     Dates: start: 20251029, end: 20251029
  5. SUFENTANIL CITRATE [Concomitant]
     Active Substance: SUFENTANIL CITRATE
     Indication: Anaesthesia
     Dosage: 20MCG
     Route: 042
     Dates: start: 20251029, end: 20251029
  6. ESKETAMINE HYDROCHLORIDE [Suspect]
     Active Substance: ESKETAMINE HYDROCHLORIDE
     Indication: Anaesthesia
     Dosage: 8.75MG
     Route: 042
     Dates: start: 20251029, end: 20251029

REACTIONS (4)
  - Anaphylactic shock [Recovered/Resolved]
  - Piloerection [Recovered/Resolved]
  - Bronchospasm [Recovered/Resolved]
  - Hypotension [Recovered/Resolved]

NARRATIVE: CASE EVENT DATE: 20251029
